FAERS Safety Report 9542802 (Version 1)
Quarter: 2013Q3

REPORT INFORMATION
  Report Type: Spontaneous
  Country: US (occurrence: US)
  Receive Date: 20130923
  Receipt Date: 20130923
  Transmission Date: 20140515
  Serious: No
  Sender: FDA-Public Use
  Company Number: US-PFIZER INC-2013272681

PATIENT
  Age: 29 Year
  Sex: Female
  Weight: 80.7 kg

DRUGS (1)
  1. NEURONTIN [Suspect]
     Indication: POST HERPETIC NEURALGIA
     Dosage: 100 MG, 3X/DAY
     Route: 048
     Dates: start: 20130918

REACTIONS (1)
  - Urine ketone body present [Unknown]
